FAERS Safety Report 5448966-5 (Version None)
Quarter: 2007Q3

REPORT INFORMATION
  Report Type: 
  Country: None (occurrence: None)
  Receive Date: 20070911
  Receipt Date: 20070831
  Transmission Date: 20080115
  Serious: Yes (Hospitalization)
  Sender: FDA-Public Use
  Company Number: SG-MERCK-0709SGP00003

PATIENT
  Age: 78 Year
  Sex: Female

DRUGS (3)
  1. FOSAMAX [Suspect]
     Indication: OSTEOPENIA
     Route: 048
     Dates: start: 19990101, end: 20070413
  2. CALCIUM (UNSPECIFIED) [Concomitant]
     Route: 048
  3. CALCITRIOL [Concomitant]
     Route: 048

REACTIONS (2)
  - BONE PAIN [None]
  - FEMUR FRACTURE [None]
